FAERS Safety Report 7174404-0 (Version None)
Quarter: 2010Q4

REPORT INFORMATION
  Report Type: 
  Country: None (occurrence: None)
  Receive Date: 20101219
  Receipt Date: 20100326
  Transmission Date: 20110411
  Serious: No
  Sender: FDA-Public Use
  Company Number: US-AMGEN-KDL402308

PATIENT

DRUGS (8)
  1. ENBREL [Suspect]
     Indication: PRODUCT USED FOR UNKNOWN INDICATION
     Dosage: 50 MG, 2 TIMES/WK
     Route: 058
  2. CLOBETASOL [Concomitant]
     Dosage: .05 %, UNK
  3. GLUCOSAMINE [Concomitant]
     Dosage: 500 MG, UNK
  4. ASCORBIC ACID [Concomitant]
     Dosage: 100 MG, UNK
  5. ERGOCALCIFEROL [Concomitant]
     Dosage: 1000 IU, UNK
  6. CALCIUM [Concomitant]
     Dosage: 500 MG, UNK
  7. URSODEOXYCHOLIC ACID [Concomitant]
     Dosage: 300 MG, UNK
  8. ACETYLSALICYLIC ACID [Concomitant]
     Dosage: 81 MG, UNK

REACTIONS (1)
  - INJECTION SITE ERYTHEMA [None]
